FAERS Safety Report 9501544 (Version 1)
Quarter: 2013Q3

REPORT INFORMATION
  Report Type: Spontaneous
  Country: JP (occurrence: JP)
  Receive Date: 20130905
  Receipt Date: 20130905
  Transmission Date: 20140515
  Serious: Yes (Other)
  Sender: FDA-Public Use
  Company Number: JP-BRACCO-007392

PATIENT
  Age: 57 Year
  Sex: Male

DRUGS (5)
  1. IOPAMIDOL [Suspect]
     Indication: BALLOON-OCCLUDED RETROGRADE TRANSVENOUS OBLITERATION
     Dosage: MIX OF 10ML OF 10% ETHANOLAMINE OLEATE AND SAME VOLUME OF IOPAMIDOL
     Route: 042
  2. ETHANOLAMINE OLEATE [Suspect]
     Indication: BALLOON-OCCLUDED RETROGRADE TRANSVENOUS OBLITERATION
     Dosage: MIX OF 10ML OF 10% ETHANOLAMINE OLEATE AND SAME VOLUME OF IOPAMIDOL
     Route: 042
  3. HAPTOGLOBINS [Concomitant]
     Indication: PROPHYLAXIS
     Route: 042
  4. ETHANOLAMINE OLEATE [Suspect]
     Indication: BALLOON-OCCLUDED RETROGRADE TRANSVENOUS OBLITERATION
     Dosage: MIX OF 10ML OF 10% ETHANOLAMINE OLEATE AND SAME VOLUME OF IOPAMIDOL
     Route: 042
  5. IOPAMIDOL [Suspect]
     Indication: BALLOON-OCCLUDED RETROGRADE TRANSVENOUS OBLITERATION
     Dosage: MIX OF 10ML OF 10% ETHANOLAMINE OLEATE AND SAME VOLUME OF IOPAMIDOL
     Route: 042

REACTIONS (1)
  - Oesophageal varices haemorrhage [Unknown]
